FAERS Safety Report 20985634 (Version 1)
Quarter: 2022Q2

REPORT INFORMATION
  Report Type: Spontaneous
  Country: US (occurrence: US)
  Receive Date: 20220621
  Receipt Date: 20220621
  Transmission Date: 20220721
  Serious: Yes (Other)
  Sender: FDA-Public Use
  Company Number: US-STRIDES ARCOLAB LIMITED-2022SP004485

PATIENT
  Age: 28 Year
  Sex: Male

DRUGS (8)
  1. GABAPENTIN [Suspect]
     Active Substance: GABAPENTIN
     Indication: Cystitis interstitial
     Dosage: 300 MILLIGRAM, TID
     Route: 065
  2. DICLOFENAC [Suspect]
     Active Substance: DICLOFENAC
     Indication: Prostatitis
     Dosage: UNK
     Route: 065
  3. KETAMINE [Concomitant]
     Active Substance: KETAMINE
     Indication: Substance use
     Dosage: UNK (CONSISTENT USE OF RECREATIONAL INTRANASAL KETAMINE FOR THE PAST 9 YEARS WITH PROGRESSIVELY INCR
     Route: 045
  4. KETAMINE [Concomitant]
     Active Substance: KETAMINE
     Indication: Drug abuse
     Dosage: 1 GRAM PER WEEK
     Route: 045
  5. AZITHROMYCIN [Concomitant]
     Active Substance: AZITHROMYCIN
     Indication: Gonorrhoea
     Dosage: 2 GRAM (ONE DOSE)
     Route: 065
  6. AZITHROMYCIN [Concomitant]
     Active Substance: AZITHROMYCIN
     Indication: Evidence based treatment
  7. CEFTRIAXONE [Concomitant]
     Active Substance: CEFTRIAXONE
     Indication: Gonorrhoea
     Dosage: 500 MILLIGRAM
     Route: 030
  8. DOXYCYCLINE [Concomitant]
     Active Substance: DOXYCYCLINE
     Indication: Urethritis
     Dosage: UNK
     Route: 065

REACTIONS (1)
  - Drug ineffective for unapproved indication [Unknown]
